FAERS Safety Report 11474151 (Version 1)
Quarter: 2015Q3

REPORT INFORMATION
  Report Type: Spontaneous
  Country: US (occurrence: US)
  Receive Date: 20150908
  Receipt Date: 20150908
  Transmission Date: 20151125
  Serious: No
  Sender: FDA-Public Use
  Company Number: US-JAZZ-2014-US-001647

PATIENT
  Age: 20 Year
  Sex: Male

DRUGS (3)
  1. XYREM [Suspect]
     Active Substance: SODIUM OXYBATE
     Dosage: 3 G, BID
     Route: 048
     Dates: start: 20140213
  2. XYREM [Suspect]
     Active Substance: SODIUM OXYBATE
     Indication: CATAPLEXY
     Dosage: 3.25 G, BID
     Route: 048
     Dates: start: 201312, end: 201401
  3. XYREM [Suspect]
     Active Substance: SODIUM OXYBATE
     Indication: NARCOLEPSY
     Dosage: 3 G, QD
     Route: 048
     Dates: start: 20140210, end: 20140212

REACTIONS (4)
  - Drug dose omission [Unknown]
  - Dysuria [Recovered/Resolved]
  - Unevaluable event [Recovered/Resolved]
  - Incontinence [Recovered/Resolved]

NARRATIVE: CASE EVENT DATE: 201401
